FAERS Safety Report 24679147 (Version 2)
Quarter: 2025Q3

REPORT INFORMATION
  Report Type: Spontaneous
  Country: AU (occurrence: AU)
  Receive Date: 20241129
  Receipt Date: 20250810
  Transmission Date: 20251020
  Serious: Yes (Disabling, Other)
  Sender: ALEXION PHARMACEUTICALS
  Company Number: AU-ASTRAZENECA-202411OCE013754AU

PATIENT
  Sex: Female

DRUGS (5)
  1. FASENRA [Suspect]
     Active Substance: BENRALIZUMAB
     Indication: Asthma
     Dosage: 30 MILLIGRAM, Q8W
     Dates: start: 20230221
  2. FASENRA [Suspect]
     Active Substance: BENRALIZUMAB
     Dosage: 30 MILLIGRAM, Q8W
     Dates: start: 20230221
  3. ALBUTEROL [Concomitant]
     Active Substance: ALBUTEROL
  4. PREDNISOLONE [Concomitant]
     Active Substance: PREDNISOLONE
  5. SERETIDE [Concomitant]
     Active Substance: FLUTICASONE PROPIONATE\SALMETEROL XINAFOATE
     Indication: Asthma
     Dosage: 2 DOSAGE FORM, BID

REACTIONS (6)
  - Asthma [Not Recovered/Not Resolved]
  - Eosinophil count [Not Recovered/Not Resolved]
  - Chills [Unknown]
  - Eczema [Unknown]
  - Muscle spasms [Unknown]
  - Drug ineffective [Unknown]
